FAERS Safety Report 25408445 (Version 2)
Quarter: 2025Q2

REPORT INFORMATION
  Report Type: Spontaneous
  Country: MX (occurrence: MX)
  Receive Date: 20250606
  Receipt Date: 20250613
  Transmission Date: 20250716
  Serious: Yes (Other)
  Sender: MERCK SHARP & DOHME LLC
  Company Number: MX-009507513-2293498

PATIENT
  Age: 67 Year
  Sex: Female
  Weight: 73 kg

DRUGS (10)
  1. EMEND [Suspect]
     Active Substance: APREPITANT
     Indication: Product used for unknown indication
     Dates: start: 20250603, end: 20250603
  2. EMEND [Suspect]
     Active Substance: APREPITANT
     Indication: Product used for unknown indication
     Dates: start: 20250604, end: 20250604
  3. PALEXIA [Concomitant]
     Active Substance: TAPENTADOL HYDROCHLORIDE
     Indication: Pain
     Route: 048
     Dates: start: 20250604, end: 20250604
  4. Chlorpheniramine 20 mg, diluted in 50 ml of 0.9% saline solution [Concomitant]
     Indication: Chemotherapy side effect prophylaxis
     Route: 042
     Dates: start: 20250604, end: 20250604
  5. DEXAMETHASONE [Concomitant]
     Active Substance: DEXAMETHASONE
     Indication: Chemotherapy side effect prophylaxis
     Route: 042
     Dates: start: 20250604, end: 20250604
  6. PALONOSETRON [Concomitant]
     Active Substance: PALONOSETRON
     Indication: Chemotherapy side effect prophylaxis
     Route: 042
     Dates: start: 20250604, end: 20250604
  7. FOLIC ACID [Concomitant]
     Active Substance: FOLIC ACID
     Indication: Product used for unknown indication
     Route: 048
     Dates: start: 20250604, end: 20250604
  8. LEVOTHYROXINE [Concomitant]
     Active Substance: LEVOTHYROXINE
     Indication: Hypothyroidism
     Route: 048
     Dates: start: 20250604, end: 20250604
  9. PREGABALIN [Concomitant]
     Active Substance: PREGABALIN
     Indication: Pain
     Route: 048
     Dates: start: 20250604, end: 20250604
  10. BISOPROLOL [Concomitant]
     Active Substance: BISOPROLOL
     Indication: Hypertension
     Route: 048
     Dates: start: 20250604, end: 20250604

REACTIONS (3)
  - Headache [Recovered/Resolved]
  - Feeling hot [Recovered/Resolved]
  - Dyspnoea [Recovered/Resolved]

NARRATIVE: CASE EVENT DATE: 20250604
